FAERS Safety Report 7181505-X (Version None)
Quarter: 2010Q4

REPORT INFORMATION
  Report Type: 
  Country: None (occurrence: None)
  Receive Date: 20101221
  Receipt Date: 20100425
  Transmission Date: 20110411
  Serious: No
  Sender: FDA-Public Use
  Company Number: US-AMGEN-TCS408429

PATIENT

DRUGS (5)
  1. ENBREL [Suspect]
     Indication: RHEUMATOID ARTHRITIS
     Dosage: 50 MG, QWK
     Route: 058
     Dates: start: 20100421, end: 20100426
  2. METHOTREXATE [Concomitant]
     Dosage: 20 MG, QWK
     Route: 048
     Dates: start: 20100310
  3. SULFASALAZINE [Concomitant]
     Dosage: UNK UNK, UNK
     Dates: start: 20070516
  4. FOLATE SODIUM [Concomitant]
     Dosage: UNK UNK, UNK
     Dates: start: 20100310
  5. ALENDRONATE SODIUM [Concomitant]
     Dosage: UNK UNK, UNK
     Dates: start: 20060101

REACTIONS (9)
  - DRUG HYPERSENSITIVITY [None]
  - DRY MOUTH [None]
  - ERYTHEMA [None]
  - ORAL PAIN [None]
  - RASH [None]
  - RASH VESICULAR [None]
  - SKIN BURNING SENSATION [None]
  - SKIN SWELLING [None]
  - SKIN WARM [None]
